FAERS Safety Report 5702556-5 (Version None)
Quarter: 2008Q2

REPORT INFORMATION
  Report Type: 
  Country: None (occurrence: None)
  Receive Date: 20080411
  Receipt Date: 20071017
  Transmission Date: 20081010
  Serious: No
  Sender: FDA-Public Use
  Company Number: US-ASTRAZENECA-2007UW24101

PATIENT
  Sex: Female

DRUGS (5)
  1. ATENOLOL [Suspect]
     Route: 048
  2. LASIX [Concomitant]
  3. SULAR [Concomitant]
  4. POTASSIUM CHLORIDE [Concomitant]
  5. AVALIDE [Concomitant]

REACTIONS (1)
  - FIBROMYALGIA [None]
